FAERS Safety Report 10068890 (Version 1)
Quarter: 2014Q2

REPORT INFORMATION
  Report Type: Spontaneous
  Country: US (occurrence: US)
  Receive Date: 20140409
  Receipt Date: 20140409
  Transmission Date: 20141212
  Serious: No
  Sender: FDA-Public Use
  Company Number: US-009507513-1404USA002378

PATIENT
  Sex: 0

DRUGS (1)
  1. COPPERTONE KIDS TEAR FREE LOTION SPF-50 [Suspect]
     Indication: PRODUCT USED FOR UNKNOWN INDICATION
     Dosage: UNK, UNKNOWN
     Route: 061
     Dates: start: 20140326, end: 201403

REACTIONS (1)
  - Rash erythematous [Not Recovered/Not Resolved]
